FAERS Safety Report 20202535 (Version 5)
Quarter: 2023Q4

REPORT INFORMATION
  Report Type: Report from Study
  Country: CO (occurrence: CO)
  Receive Date: 20211218
  Receipt Date: 20231130
  Transmission Date: 20240110
  Serious: Yes (Hospitalization, Other)
  Sender: FDA-Public Use
  Company Number: CO-ABBVIE-21K-036-3951792-00

PATIENT
  Age: 73 Year
  Sex: Male
  Weight: 64 kg

DRUGS (4)
  1. HUMIRA [Suspect]
     Active Substance: ADALIMUMAB
     Indication: Crohn^s disease
     Dosage: FORM STRENGTH: 40 MG
     Route: 058
     Dates: start: 20200413, end: 20210430
  2. HUMIRA [Suspect]
     Active Substance: ADALIMUMAB
     Dosage: FORM STRENGTH: 40 MG
     Route: 058
     Dates: start: 2021
  3. FOLIC ACID [Concomitant]
     Active Substance: FOLIC ACID
     Indication: Crohn^s disease
     Dosage: FORM STRENGTH: 1 MG
     Dates: start: 202303
  4. AZATHIOPRINE [Concomitant]
     Active Substance: AZATHIOPRINE
     Indication: Crohn^s disease
     Dosage: FORM STRENGTH: 150 MG
     Dates: start: 2020

REACTIONS (20)
  - Fistula discharge [Recovered/Resolved]
  - Renal disorder [Not Recovered/Not Resolved]
  - Dizziness [Recovering/Resolving]
  - Gastrointestinal disorder [Recovering/Resolving]
  - Gastrointestinal disorder [Recovered/Resolved]
  - Hernia [Not Recovered/Not Resolved]
  - Infection [Recovered/Resolved]
  - Intestinal fistula infection [Recovered/Resolved]
  - Fistula discharge [Recovered/Resolved]
  - Fistula discharge [Recovering/Resolving]
  - Post procedural contusion [Not Recovered/Not Resolved]
  - Discouragement [Not Recovered/Not Resolved]
  - Bloody discharge [Not Recovered/Not Resolved]
  - Haematoma [Not Recovered/Not Resolved]
  - Blister [Not Recovered/Not Resolved]
  - Abdominal pain [Recovered/Resolved]
  - Diarrhoea [Recovered/Resolved]
  - Pyrexia [Not Recovered/Not Resolved]
  - Skin disorder [Not Recovered/Not Resolved]
  - Purulent discharge [Recovering/Resolving]

NARRATIVE: CASE EVENT DATE: 20210531
